FAERS Safety Report 7826043-3 (Version None)
Quarter: 2011Q4

REPORT INFORMATION
  Report Type: 
  Country: None (occurrence: None)
  Receive Date: 20111019
  Receipt Date: 20111010
  Transmission Date: 20120403
  Serious: Yes (Hospitalization)
  Sender: FDA-Public Use
  Company Number: US-ASTRAZENECA-2009UW07347

PATIENT
  Age: 82 Year
  Sex: Female
  Weight: 68.9 kg

DRUGS (20)
  1. SINGULAIR [Concomitant]
     Indication: ASTHMA
  2. SPIRIVA [Concomitant]
     Route: 048
  3. ADVAIR DISKUS 100/50 [Concomitant]
  4. RHINOCORT [Suspect]
     Indication: ASTHMA
     Dosage: 32 MCG/ACT 1 PUFF IN EACH NOSTRIL ONCE A DAY
     Route: 045
  5. FLOVENT [Concomitant]
     Indication: ASTHMA
     Dosage: 110MCG/ACT 2 PUFFS TWICE A DAY
  6. AXID [Concomitant]
  7. ZOCOR [Concomitant]
  8. ZETIA [Concomitant]
  9. PRAVASTATIN [Concomitant]
  10. WELCHOL [Concomitant]
  11. ASPIRIN [Concomitant]
  12. FLUDROCORTISONE ACETATE [Concomitant]
  13. TOPAMAX [Concomitant]
  14. MEVACOR [Concomitant]
  15. LEVOTHYROXINE SODIUM [Concomitant]
     Indication: HYPOTHYROIDISM
  16. CRESTOR [Suspect]
     Indication: BLOOD CHOLESTEROL INCREASED
     Route: 048
     Dates: start: 20090301
  17. MARPLAN [Concomitant]
     Indication: DEPRESSION
  18. LEVSIN/SL [Concomitant]
     Indication: ABDOMINAL PAIN
     Dosage: 1 TO 2 TABLETS UNDER THE TONGUE AND ALLOW TO DISSOLVE SUBLINGUAL EVERY FOUR HOURS AS NEEDED
     Route: 060
  19. LODINE [Concomitant]
  20. CODEINE SUL TAB [Concomitant]

REACTIONS (7)
  - ABDOMINAL DISCOMFORT [None]
  - ASTHMA [None]
  - ABDOMINAL PAIN UPPER [None]
  - PAIN IN EXTREMITY [None]
  - DIARRHOEA [None]
  - ABDOMINAL PAIN [None]
  - MUSCLE SPASMS [None]
